FAERS Safety Report 8682643 (Version 2)
Quarter: 2012Q4

REPORT INFORMATION
  Report Type: 
  Country: US (occurrence: US)
  Receive Date: 20120725
  Receipt Date: 20120919
  Transmission Date: 20130627
  Serious: No
  Sender: FDA-Public Use
  Company Number: US-ASTRAZENECA-2012SE46368

PATIENT
  Age: 77 Year
  Sex: Female

DRUGS (1)
  1. TOPROL XL [Suspect]
     Dosage: GENERIC
     Route: 048

REACTIONS (3)
  - Malaise [Unknown]
  - Malaise [Unknown]
  - Rash [Unknown]
